FAERS Safety Report 17507477 (Version 1)
Quarter: 2020Q1

REPORT INFORMATION
  Report Type: Report from Study
  Country: NL (occurrence: NL)
  Receive Date: 20200306
  Receipt Date: 20200306
  Transmission Date: 20200409
  Serious: Yes (Other)
  Sender: FDA-Public Use
  Company Number: NL-AUROBINDO-AUR-APL-2020-010877

PATIENT
  Sex: Female

DRUGS (9)
  1. FACTOR I (FIBRINOGEN) [Suspect]
     Active Substance: FIBRINOGEN HUMAN
     Indication: PROPHYLAXIS
     Dosage: 3 GRAM, EVERY OTHER DAY
     Route: 065
  2. TRANEXAMIC ACID. [Suspect]
     Active Substance: TRANEXAMIC ACID
     Indication: FACTOR I DEFICIENCY
     Dosage: 3 GRAM, ONCE A DAY (1 GRAM, TID (EVERY 8 HOURS))
     Route: 065
  3. MISOPROSTOL. [Concomitant]
     Active Substance: MISOPROSTOL
     Indication: PRODUCT USED FOR UNKNOWN INDICATION
     Dosage: UNK
     Route: 065
  4. FACTOR I (FIBRINOGEN) [Suspect]
     Active Substance: FIBRINOGEN HUMAN
     Indication: FACTOR I DEFICIENCY
     Dosage: 3 GRAM, FOUR TIMES/DAY (50MG/KG)
     Route: 065
  5. FACTOR I (FIBRINOGEN) [Suspect]
     Active Substance: FIBRINOGEN HUMAN
     Indication: VAGINAL HAEMORRHAGE
     Dosage: 3 GRAM EVERY 3 DAYS FOR 1 WEEK (50MG/KG)
     Route: 065
  6. FACTOR I (FIBRINOGEN) [Suspect]
     Active Substance: FIBRINOGEN HUMAN
     Dosage: 2 GRAM ((33MG/KG) DURING LABOUR)
     Route: 065
  7. OXYTOCIN. [Concomitant]
     Active Substance: OXYTOCIN
     Indication: PRODUCT USED FOR UNKNOWN INDICATION
     Dosage: UNK
     Route: 065
  8. TRANEXAMIC ACID. [Suspect]
     Active Substance: TRANEXAMIC ACID
     Indication: VAGINAL HAEMORRHAGE
     Dosage: 1 GRAM (17 MG/KG)
     Route: 065
  9. FACTOR I (FIBRINOGEN) [Suspect]
     Active Substance: FIBRINOGEN HUMAN
     Dosage: 2 GRAM ((33MG/KG) POST-LABOUR)
     Route: 065

REACTIONS (4)
  - Product use in unapproved indication [Unknown]
  - Deep vein thrombosis [Recovered/Resolved]
  - No adverse event [Unknown]
  - Thrombophlebitis superficial [Recovered/Resolved]
